FAERS Safety Report 6255674-X (Version None)
Quarter: 2009Q3

REPORT INFORMATION
  Report Type: 
  Country: None (occurrence: None)
  Receive Date: 20090701
  Receipt Date: 20090620
  Transmission Date: 20100115
  Serious: Yes (Hospitalization)
  Sender: FDA-Public Use
  Company Number: 2009AP002507

PATIENT
  Age: 42 Year
  Sex: Male

DRUGS (2)
  1. LITHIUM CARBONATE CAP [Suspect]
     Dosage: 800 MG; QD
  2. FLUNITRAZEPAM [Concomitant]

REACTIONS (6)
  - DRUG TOXICITY [None]
  - HYPERTENSION [None]
  - LOCKED-IN SYNDROME [None]
  - NEUROLEPTIC MALIGNANT SYNDROME [None]
  - OVERDOSE [None]
  - TACHYCARDIA [None]
